FAERS Safety Report 18491039 (Version 1)
Quarter: 2020Q4

REPORT INFORMATION
  Report Type: Spontaneous
  Country: ES (occurrence: ES)
  Receive Date: 20201111
  Receipt Date: 20201111
  Transmission Date: 20210114
  Serious: Yes (Hospitalization)
  Sender: FDA-Public Use
  Company Number: NVSC2020ES298274

PATIENT
  Age: 83 Year
  Sex: Male

DRUGS (4)
  1. SINTROM [Interacting]
     Active Substance: ACENOCOUMAROL
     Indication: ATRIAL FIBRILLATION
     Dosage: 3 MG, QD (4 MG COMPRIMIDOS, 20 COMPRIMIDOS)
     Route: 048
     Dates: start: 20171020, end: 20201011
  2. DOXYCYCLINE. [Interacting]
     Active Substance: DOXYCYCLINE
     Indication: PRODUCT USED FOR UNKNOWN INDICATION
     Dosage: UNK
     Route: 065
     Dates: start: 20200923, end: 20201007
  3. ADIRO [Interacting]
     Active Substance: ASPIRIN
     Indication: PRODUCT USED FOR UNKNOWN INDICATION
     Dosage: UNK (100 MG COMPRIMIDOS GASTRORRESISTENTES EFG, 30 COMPRIMIDOS (PVC- ALUMINIO))
     Route: 048
     Dates: start: 20200923
  4. ATORVASTATIN [Suspect]
     Active Substance: ATORVASTATIN
     Indication: PRODUCT USED FOR UNKNOWN INDICATION
     Dosage: UNK
     Route: 048
     Dates: start: 20200923

REACTIONS (3)
  - Haematoma muscle [Recovered/Resolved]
  - Gastroduodenal haemorrhage [Recovered/Resolved]
  - Blood loss anaemia [Recovered/Resolved]

NARRATIVE: CASE EVENT DATE: 20201010
